FAERS Safety Report 6553845-6 (Version None)
Quarter: 2010Q1

REPORT INFORMATION
  Report Type: 
  Country: None (occurrence: None)
  Receive Date: 20100127
  Receipt Date: 20100120
  Transmission Date: 20100710
  Serious: Yes (Hospitalization)
  Sender: FDA-Public Use
  Company Number: US-ROCHE-677805

PATIENT
  Sex: Female
  Weight: 90 kg

DRUGS (15)
  1. TRASTUZUMAB [Suspect]
     Dosage: DOSE LEVEL: 6 MG/KG. DOSAGE FORM: VIALS. LASTDOSE PRIOR TO SAE: 03 DECEMBER 2009.
     Route: 042
     Dates: start: 20091022, end: 20091223
  2. TRASTUZUMAB [Suspect]
     Route: 042
     Dates: start: 20100114
  3. CARBOPLATIN [Suspect]
     Dosage: DOSE LEVEL: 6 AUC, FORM VIALS.
     Route: 042
     Dates: start: 20091022
  4. CARBOPLATIN [Suspect]
     Dosage: DOSE LEVEL: 5 AUC, DOSE REDUCED.
     Route: 042
     Dates: end: 20091223
  5. CARBOPLATIN [Suspect]
     Route: 042
     Dates: start: 20100114
  6. DOCETAXEL [Suspect]
     Dosage: FORM: VIALS. DOSE LEVEL: 75 MG/ M2. LAST DOSE PRIOR TO SAE: 03 DECEMBER 2009.
     Route: 042
     Dates: start: 20091022
  7. DOCETAXEL [Suspect]
     Dosage: DOSE LEVEL: 60 MG/ M2. DOSE REDUCED.
     Route: 042
     Dates: end: 20091223
  8. DOCETAXEL [Suspect]
     Route: 042
     Dates: start: 20100114
  9. ZOFRAN [Concomitant]
     Dates: start: 20091112
  10. ATIVAN [Concomitant]
     Dates: start: 20091022
  11. FISH OIL [Concomitant]
     Dates: start: 20090916
  12. NAPROSYN [Concomitant]
     Dates: start: 20090916
  13. SYNTHROID [Concomitant]
     Dates: start: 20090916
  14. BENICAR [Concomitant]
     Dates: start: 20090916
  15. ZOLOFT [Concomitant]
     Dates: start: 20090916

REACTIONS (2)
  - HAEMOLYTIC TRANSFUSION REACTION [None]
  - RENAL FAILURE [None]
